FAERS Safety Report 7772939-0 (Version None)
Quarter: 2011Q3

REPORT INFORMATION
  Report Type: 
  Country: None (occurrence: None)
  Receive Date: 20110922
  Receipt Date: 20110406
  Transmission Date: 20111222
  Serious: Yes (Other)
  Sender: FDA-Public Use
  Company Number: US-ASTRAZENECA-2011SE19588

PATIENT
  Age: 37 Year
  Sex: Male
  Weight: 68 kg

DRUGS (1)
  1. SEROQUEL [Suspect]
     Indication: DEPRESSION
     Route: 048

REACTIONS (3)
  - CONVULSION [None]
  - BLOOD GLUCOSE DECREASED [None]
  - AMNESIA [None]
